FAERS Safety Report 9366357 (Version 2)
Quarter: 2013Q3

REPORT INFORMATION
  Report Type: Spontaneous
  Country: US (occurrence: US)
  Receive Date: 20130625
  Receipt Date: 20130711
  Transmission Date: 20140515
  Serious: Yes (Other)
  Sender: FDA-Public Use
  Company Number: US-JNJFOC-20130613615

PATIENT
  Sex: Male

DRUGS (2)
  1. DOXORUBICIN [Suspect]
     Indication: PROSTATE CANCER METASTATIC
     Route: 042
  2. CETUXIMAB [Suspect]
     Indication: PROSTATE CANCER METASTATIC
     Route: 042

REACTIONS (14)
  - Prostate cancer metastatic [Unknown]
  - Rash macular [Unknown]
  - Pyoderma gangrenosum [Unknown]
  - Nausea [Unknown]
  - Stomatitis [Unknown]
  - Vomiting [Unknown]
  - Pyrexia [Unknown]
  - Hyperglycaemia [Unknown]
  - Metastases to bone [Unknown]
  - Off label use [Unknown]
  - Fatigue [Unknown]
  - Malaise [Unknown]
  - Neutropenia [Unknown]
  - Stomatitis [Unknown]
